FAERS Safety Report 5386925-1 (Version None)
Quarter: 2007Q3

REPORT INFORMATION
  Report Type: 
  Country: None (occurrence: None)
  Receive Date: 20070713
  Receipt Date: 20070702
  Transmission Date: 20080115
  Serious: Yes (Hospitalization, Other)
  Sender: FDA-Public Use
  Company Number: US-PFIZER INC-2007054504

PATIENT
  Sex: Male
  Weight: 74.4 kg

DRUGS (2)
  1. CELEBREX [Suspect]
     Indication: PAIN
  2. VIOXX [Suspect]
     Indication: PAIN
     Dates: start: 20021210

REACTIONS (1)
  - CARDIOVASCULAR DISORDER [None]
